FAERS Safety Report 8358366-6 (Version None)
Quarter: 2012Q2

REPORT INFORMATION
  Report Type: 
  Country: None (occurrence: None)
  Receive Date: 20120514
  Receipt Date: 20110502
  Transmission Date: 20120825
  Serious: No
  Sender: FDA-Public Use
  Company Number: US-ALEXION-A201100634

PATIENT
  Sex: Female

DRUGS (5)
  1. DIFLUCAN [Concomitant]
     Dosage: UNK
  2. ATIVAN [Suspect]
     Dosage: UNK
  3. VALTREX [Concomitant]
     Dosage: UNK
  4. POTASSIUM CHLORIDE [Concomitant]
     Dosage: UNK
  5. SOLIRIS [Suspect]
     Indication: PAROXYSMAL NOCTURNAL HAEMOGLOBINURIA
     Dosage: UNK
     Route: 042
     Dates: end: 20110308

REACTIONS (2)
  - CHEST PAIN [None]
  - PULMONARY CONGESTION [None]
